FAERS Safety Report 11611260 (Version 2)
Quarter: 2015Q4

REPORT INFORMATION
  Report Type: Spontaneous
  Country: US (occurrence: US)
  Receive Date: 20151008
  Receipt Date: 20151103
  Transmission Date: 20160304
  Serious: Yes (Disabling)
  Sender: FDA-Public Use
  Company Number: US-009507513-1510USA002797

PATIENT
  Age: 13 Year
  Sex: Male

DRUGS (1)
  1. ZOLINZA [Suspect]
     Active Substance: VORINOSTAT
     Indication: MYCOSIS FUNGOIDES
     Dosage: 2 CAPSULES TWICE DAILY
     Route: 048
     Dates: start: 201406

REACTIONS (1)
  - Gastrointestinal tube insertion [Not Recovered/Not Resolved]

NARRATIVE: CASE EVENT DATE: 20150918
